FAERS Safety Report 26027426 (Version 1)
Quarter: 2025Q4

REPORT INFORMATION
  Report Type: Spontaneous
  Country: US (occurrence: US)
  Receive Date: 20251111
  Receipt Date: 20251111
  Transmission Date: 20260117
  Serious: Yes (Other)
  Sender: INCYTE
  Company Number: US-INCYTE CORPORATION-2025IN012296

PATIENT
  Age: 65 Year
  Weight: 63.7 kg

DRUGS (1)
  1. JAKAFI [Suspect]
     Active Substance: RUXOLITINIB
     Indication: Myelodysplastic syndrome
     Dosage: 5 MILLIGRAM, BID

REACTIONS (3)
  - Myelodysplastic syndrome [Not Recovered/Not Resolved]
  - Disease progression [Not Recovered/Not Resolved]
  - Off label use [Unknown]
